FAERS Safety Report 4617641-9 (Version None)
Quarter: 2005Q1

REPORT INFORMATION
  Report Type: 
  Country: None (occurrence: None)
  Receive Date: 20050322
  Receipt Date: 20050311
  Transmission Date: 20050727
  Serious: Yes (Other)
  Sender: FDA-Public Use
  Company Number: S05-USA-01423-01

PATIENT
  Age: 62 Year
  Sex: Female

DRUGS (2)
  1. THYROID TAB [Suspect]
     Indication: HYPOTHYROIDISM
     Dosage: 15 MG BID PO
     Route: 048
     Dates: start: 20010101, end: 20050310
  2. VITAMINS NOS [Concomitant]

REACTIONS (3)
  - DIZZINESS [None]
  - HEART RATE INCREASED [None]
  - PNEUMONIA MYCOPLASMAL [None]
